FAERS Safety Report 9006192 (Version 1)
Quarter: 2013Q1

REPORT INFORMATION
  Report Type: Spontaneous
  Country: GB (occurrence: GB)
  Receive Date: 20130110
  Receipt Date: 20130110
  Transmission Date: 20140127
  Serious: Yes (Other)
  Sender: FDA-Public Use
  Company Number: GB-AMGEN-IRLSP2013000631

PATIENT
  Age: 73 Year
  Sex: Female
  Weight: 43 kg

DRUGS (5)
  1. PROLIA [Suspect]
     Indication: PRODUCT USED FOR UNKNOWN INDICATION
     Dosage: UNK
  2. BACLOFEN [Concomitant]
     Dosage: UNK
     Dates: end: 20121218
  3. BENDROFLUMETHIAZIDE [Concomitant]
     Dosage: UNK
     Dates: end: 20120925
  4. TEMAZEPAM [Concomitant]
     Dosage: UNK
     Dates: end: 20121105
  5. TERBINAFINE [Concomitant]
     Dosage: UNK
     Dates: end: 20121015

REACTIONS (1)
  - Rash [Recovered/Resolved]
